FAERS Safety Report 21982042 (Version 1)
Quarter: 2023Q1

REPORT INFORMATION
  Report Type: Report from Study
  Country: US (occurrence: US)
  Receive Date: 20230213
  Receipt Date: 20230213
  Transmission Date: 20230417
  Serious: Yes (Other)
  Sender: FDA-Public Use
  Company Number: US-BEH-2022147744

PATIENT
  Age: 75 Year
  Sex: Male
  Weight: 76.19 kg

DRUGS (5)
  1. HIZENTRA [Suspect]
     Active Substance: HUMAN IMMUNOGLOBULIN G
     Indication: Primary immunodeficiency syndrome
     Dosage: 12 GRAM, QW
     Route: 058
     Dates: start: 20220604
  2. HIZENTRA [Suspect]
     Active Substance: HUMAN IMMUNOGLOBULIN G
     Dosage: UNK
     Route: 058
     Dates: start: 20220809
  3. HIZENTRA [Suspect]
     Active Substance: HUMAN IMMUNOGLOBULIN G
     Dosage: UNK
     Route: 058
     Dates: start: 20220815
  4. PLAVIX [Concomitant]
     Active Substance: CLOPIDOGREL BISULFATE
  5. COUMADIN [Concomitant]
     Active Substance: WARFARIN SODIUM

REACTIONS (11)
  - COVID-19 [Recovered/Resolved]
  - No adverse event [Recovered/Resolved]
  - Product supply issue [Recovered/Resolved]
  - Inappropriate schedule of product administration [Recovered/Resolved]
  - Infusion site pain [Unknown]
  - Diarrhoea [Unknown]
  - Rash [Recovering/Resolving]
  - Infusion site haemorrhage [Unknown]
  - Localised infection [Unknown]
  - Skin disorder [Unknown]
  - Leg amputation [Unknown]

NARRATIVE: CASE EVENT DATE: 20220101
